FAERS Safety Report 6263258-2 (Version None)
Quarter: 2009Q3

REPORT INFORMATION
  Report Type: 
  Country: None (occurrence: None)
  Receive Date: 20090708
  Receipt Date: 20090708
  Transmission Date: 20100115
  Serious: No
  Sender: FDA-Public Use
  Company Number: None

PATIENT
  Age: 51 Year
  Sex: Male
  Weight: 83.9154 kg

DRUGS (1)
  1. ZICAM NASAL GEL [Suspect]
     Indication: NASOPHARYNGITIS
     Dates: start: 20051223, end: 20051225

REACTIONS (1)
  - HYPOSMIA [None]
